FAERS Safety Report 12922155 (Version 7)
Quarter: 2018Q1

REPORT INFORMATION
  Report Type: Report from Study
  Country: US (occurrence: US)
  Receive Date: 20161108
  Receipt Date: 20180104
  Transmission Date: 20180508
  Serious: No
  Sender: FDA-Public Use
  Company Number: PHEH2016US029043

PATIENT
  Age: 56 Year
  Sex: Female

DRUGS (1)
  1. COSENTYX [Suspect]
     Active Substance: SECUKINUMAB
     Indication: PRODUCT USED FOR UNKNOWN INDICATION
     Dosage: UNK UNK, QMO
     Route: 065
     Dates: start: 20161111

REACTIONS (9)
  - Pain [Unknown]
  - Pain in extremity [Not Recovered/Not Resolved]
  - Rash [Unknown]
  - Skin haemorrhage [Unknown]
  - Skin tightness [Unknown]
  - Skin fissures [Unknown]
  - Skin burning sensation [Unknown]
  - Blister [Unknown]
  - Gait disturbance [Unknown]

NARRATIVE: CASE EVENT DATE: 20161111
